FAERS Safety Report 7550155-5 (Version None)
Quarter: 2011Q2

REPORT INFORMATION
  Report Type: 
  Country: None (occurrence: None)
  Receive Date: 20110615
  Receipt Date: 20110601
  Transmission Date: 20111010
  Serious: Yes (Hospitalization, Other)
  Sender: FDA-Public Use
  Company Number: FI-UCBSA-034383

PATIENT

DRUGS (6)
  1. LAMICTAL [Suspect]
     Dosage: REDUCED AD 100MG 1.5X2
  2. LAMICTAL [Suspect]
     Dosage: 200MG; 1X2
  3. KEPPRA [Suspect]
     Dosage: 500MG; 3X2
  4. KEPPRA [Suspect]
     Dosage: 500MG 2X2
  5. LAMICTAL [Suspect]
  6. KEPPRA [Suspect]

REACTIONS (6)
  - MEMORY IMPAIRMENT [None]
  - HYPOAESTHESIA [None]
  - CONVULSION [None]
  - FALL [None]
  - TOXICITY TO VARIOUS AGENTS [None]
  - INJURY [None]
